FAERS Safety Report 5453219-5 (Version None)
Quarter: 2007Q3

REPORT INFORMATION
  Report Type: 
  Country: None (occurrence: None)
  Receive Date: 20070914
  Receipt Date: 20070905
  Transmission Date: 20080115
  Serious: Yes (Other)
  Sender: FDA-Public Use
  Company Number: US-ABBOTT-07P-163-0416299-00

PATIENT
  Age: 31 Year
  Sex: Male
  Weight: 70.37 kg

DRUGS (7)
  1. RITONAVIR [Suspect]
     Indication: HIV INFECTION
  2. INDINAVIR [Suspect]
     Indication: HIV INFECTION
  3. LAMIVUDINE [Suspect]
     Indication: HIV INFECTION
  4. OLANZAPINE [Concomitant]
     Indication: BIPOLAR DISORDER
  5. LAMOTRIGINE [Concomitant]
     Indication: BIPOLAR DISORDER
  6. TESTOSTERONE [Concomitant]
     Indication: HORMONE REPLACEMENT THERAPY
     Dosage: NOT REPORTED
  7. DRONABINOL [Concomitant]
     Indication: DRUG USE FOR UNKNOWN INDICATION

REACTIONS (1)
  - NEPHROPATHY TOXIC [None]
